FAERS Safety Report 15410741 (Version 1)
Quarter: 2018Q3

REPORT INFORMATION
  Report Type: Spontaneous
  Country: US (occurrence: US)
  Receive Date: 20180919
  Receipt Date: 20180919
  Transmission Date: 20181010
  Serious: Yes (Hospitalization)
  Sender: FDA-Public Use
  Company Number: None

PATIENT
  Age: 69 Year
  Sex: Male
  Weight: 113 kg

DRUGS (10)
  1. HALOPERIDOL. [Concomitant]
     Active Substance: HALOPERIDOL
  2. NEXIUM [Concomitant]
     Active Substance: ESOMEPRAZOLE MAGNESIUM
  3. PENTOXIFYLLINE. [Concomitant]
     Active Substance: PENTOXIFYLLINE
  4. ASPIRIN. [Concomitant]
     Active Substance: ASPIRIN
  5. DILTIAZEM. [Concomitant]
     Active Substance: DILTIAZEM
  6. VALPROIC ACID. [Concomitant]
     Active Substance: VALPROIC ACID
  7. TAMSULOSIN [Concomitant]
     Active Substance: TAMSULOSIN
  8. APIXABAN [Suspect]
     Active Substance: APIXABAN
     Indication: ATRIAL FLUTTER
     Route: 048
     Dates: start: 20180524, end: 20180607
  9. ATORVASTATIN [Concomitant]
     Active Substance: ATORVASTATIN
  10. LEVOTHYROXINE. [Concomitant]
     Active Substance: LEVOTHYROXINE

REACTIONS (1)
  - Rectal haemorrhage [None]

NARRATIVE: CASE EVENT DATE: 20180607
